FAERS Safety Report 19408118 (Version 1)
Quarter: 2021Q2

REPORT INFORMATION
  Report Type: Spontaneous
  Country: US (occurrence: US)
  Receive Date: 20210611
  Receipt Date: 20210611
  Transmission Date: 20210717
  Serious: No
  Sender: FDA-Public Use
  Company Number: US-SA-2021SA181428

PATIENT

DRUGS (1)
  1. XYZAL ALLERGY 24HR [Suspect]
     Active Substance: LEVOCETIRIZINE DIHYDROCHLORIDE
     Indication: PERENNIAL ALLERGY
     Dosage: UNK
     Route: 065

REACTIONS (8)
  - Tic [Unknown]
  - Pollakiuria [Unknown]
  - Mood swings [Unknown]
  - Oedema peripheral [Unknown]
  - Fluid retention [Unknown]
  - Muscle spasms [Unknown]
  - Thirst [Unknown]
  - Condition aggravated [Unknown]
